FAERS Safety Report 5309832-9 (Version None)
Quarter: 2007Q2

REPORT INFORMATION
  Report Type: 
  Country: None (occurrence: None)
  Receive Date: 20070427
  Receipt Date: 20070417
  Transmission Date: 20071010
  Serious: Yes (Other)
  Sender: FDA-Public Use
  Company Number: JP-ROCHE-485273

PATIENT
  Age: 5 Year
  Sex: Female
  Weight: 17 kg

DRUGS (5)
  1. TAMIFLU [Suspect]
     Dosage: FORM: DRY SYRUP
     Route: 048
     Dates: start: 20070220, end: 20070220
  2. ASVERIN [Concomitant]
     Route: 048
     Dates: start: 20070220, end: 20070223
  3. MUCODYNE [Concomitant]
     Route: 048
     Dates: start: 20070220, end: 20070223
  4. TELGIN G [Concomitant]
     Route: 048
     Dates: start: 20070220, end: 20070223
  5. TOMIRON [Concomitant]
     Route: 048
     Dates: start: 20070219, end: 20070220

REACTIONS (1)
  - ABNORMAL BEHAVIOUR [None]
